FAERS Safety Report 19243024 (Version 1)
Quarter: 2021Q2

REPORT INFORMATION
  Report Type: Other
  Country: CN (occurrence: CN)
  Receive Date: 20210511
  Receipt Date: 20210511
  Transmission Date: 20210717
  Serious: Yes (Other)
  Sender: FDA-Public Use
  Company Number: CN-ROCHE-2820780

PATIENT

DRUGS (3)
  1. PREDNISONE. [Suspect]
     Active Substance: PREDNISONE
     Indication: GLOMERULONEPHRITIS MEMBRANOUS
     Dosage: ONCE IN THE MORNING, AND THE DOSE WAS REDUCED AFTER 8 WEEKS OF TREATMENT, DECREASED BY 5 MG/D EVERY
     Route: 048
  2. TACROLIMUS. [Suspect]
     Active Substance: TACROLIMUS
     Indication: GLOMERULONEPHRITIS MEMBRANOUS
     Dosage: DIVIDED IN THE MORNING AND EVENING, TWICE A DAY, WITH MONITORING ON THE CHANGES IN BLOOD CONCENTRATI
     Route: 048
  3. MYCOPHENOLATE MOFETIL. [Suspect]
     Active Substance: MYCOPHENOLATE MOFETIL
     Indication: GLOMERULONEPHRITIS MEMBRANOUS
     Dosage: 2 CAPSULES/TIME.
     Route: 048

REACTIONS (1)
  - Arrhythmia [Unknown]
